FAERS Safety Report 13639017 (Version 1)
Quarter: 2017Q2

REPORT INFORMATION
  Report Type: Spontaneous
  Country: US (occurrence: US)
  Receive Date: 20170609
  Receipt Date: 20170609
  Transmission Date: 20170830
  Serious: Yes (Other)
  Sender: FDA-Public Use
  Company Number: US-ALLERGAN-1707479US

PATIENT
  Age: 63 Year
  Sex: Female
  Weight: 68.93 kg

DRUGS (3)
  1. REFRESH CELLUVISC [Suspect]
     Active Substance: CARBOXYMETHYLCELLULOSE SODIUM
     Indication: DRY EYE
     Dosage: UNK
     Route: 047
     Dates: start: 2016
  2. METFORMIN [Concomitant]
     Active Substance: METFORMIN HYDROCHLORIDE
     Indication: TYPE 2 DIABETES MELLITUS
     Dosage: UNK
  3. LISINOPRIL. [Concomitant]
     Active Substance: LISINOPRIL
     Indication: BLOOD PRESSURE MANAGEMENT
     Dosage: UNK
     Dates: start: 2011

REACTIONS (9)
  - Hand fracture [Not Recovered/Not Resolved]
  - Fall [Recovered/Resolved]
  - Vision blurred [Not Recovered/Not Resolved]
  - Corneal abrasion [Unknown]
  - Eye pain [Unknown]
  - Drug ineffective [Unknown]
  - Influenza [Not Recovered/Not Resolved]
  - Visual impairment [Not Recovered/Not Resolved]
  - Bacterial toxaemia [Unknown]

NARRATIVE: CASE EVENT DATE: 201612
